FAERS Safety Report 25539466 (Version 1)
Quarter: 2025Q3

REPORT INFORMATION
  Report Type: Spontaneous
  Country: US (occurrence: None)
  Receive Date: 20250710
  Receipt Date: 20250710
  Transmission Date: 20251020
  Serious: Yes (Hospitalization)
  Sender: FDA-CTU
  Company Number: None

PATIENT
  Age: 12 Month
  Sex: Male
  Weight: 8.54 kg

DRUGS (3)
  1. CYCLOPHOSPHAMIDE [Suspect]
     Active Substance: CYCLOPHOSPHAMIDE
     Dates: end: 20250426
  2. FILGRASTIM [Suspect]
     Active Substance: FILGRASTIM
     Dates: end: 20250427
  3. TOPOTECAN [Suspect]
     Active Substance: TOPOTECAN HYDROCHLORIDE
     Dates: end: 20250426

REACTIONS (5)
  - Pneumonia aspiration [None]
  - Dysphagia [None]
  - Retching [None]
  - Vomiting [None]
  - Abdominal mass [None]

NARRATIVE: CASE EVENT DATE: 20250428
